FAERS Safety Report 11699094 (Version 1)
Quarter: 2015Q4

REPORT INFORMATION
  Report Type: Report from Study
  Country: NL (occurrence: NL)
  Receive Date: 20151104
  Receipt Date: 20151104
  Transmission Date: 20160304
  Serious: Yes (Death, Other)
  Sender: FDA-Public Use
  Company Number: NL-ABBVIE-15P-114-1477126-00

PATIENT
  Age: 75 Year
  Sex: Male
  Weight: 90 kg

DRUGS (2)
  1. LUCRIN DEPOT [Suspect]
     Active Substance: LEUPROLIDE ACETATE
     Indication: PROSTATE CANCER
     Route: 058
     Dates: start: 20130613
  2. FENTANYL. [Concomitant]
     Active Substance: FENTANYL
     Indication: PAIN
     Dosage: 25UG/HR. CUTANEOUS
     Route: 050

REACTIONS (4)
  - Asthenia [Not Recovered/Not Resolved]
  - Death [Fatal]
  - Localised oedema [Not Recovered/Not Resolved]
  - Oedema peripheral [Not Recovered/Not Resolved]

NARRATIVE: CASE EVENT DATE: 2015
